FAERS Safety Report 4294695-3 (Version None)
Quarter: 2004Q1

REPORT INFORMATION
  Report Type: 
  Country: None (occurrence: None)
  Receive Date: 20040213
  Receipt Date: 20010601
  Transmission Date: 20041129
  Serious: Yes (Hospitalization)
  Sender: FDA-Public Use
  Company Number: US-ROCHE-261551

PATIENT
  Age: 44 Year
  Sex: Female
  Weight: 99.8 kg

DRUGS (21)
  1. PEG-INTERFERON ALFA 2A (RO 25-8310) [Suspect]
     Route: 058
     Dates: start: 20010618, end: 20030520
  2. PEG-INTERFERON ALFA 2A (RO 25-8310) [Suspect]
     Route: 058
     Dates: end: 20040203
  3. RIBAVIRIN [Suspect]
     Route: 048
     Dates: start: 20010618
  4. URSO [Concomitant]
     Route: 048
  5. CELEXA [Concomitant]
     Indication: DEPRESSION
     Route: 048
  6. HYDROCHLOROTHIAZIDE [Concomitant]
     Dosage: DOSING FREQUENCY REPORTED AS EVERY OTHER DAY.
     Route: 048
  7. PRILOSEC [Concomitant]
     Route: 048
  8. ATARAX [Concomitant]
     Dosage: TAKEN AT BED-TIME.
     Route: 048
  9. ATIVAN [Concomitant]
     Dates: start: 20010813
  10. TRAZODONE HCL [Concomitant]
     Dates: start: 20020605
  11. GLUCOTROL [Concomitant]
     Dosage: DOSE INCREASED FROM 2.5 MG QD TO 10 MG QD ON 21 MAY 2003.
     Dates: start: 20020711
  12. MULTI-VITAMIN [Concomitant]
     Indication: VITAMIN SUPPLEMENTATION
     Route: 048
  13. VITAMIN E [Concomitant]
     Indication: VITAMIN SUPPLEMENTATION
     Route: 048
     Dates: start: 20010630
  14. ACETAMINOPHEN [Concomitant]
     Dates: start: 20010702
  15. CELEBREX [Concomitant]
     Dates: start: 20030515
  16. NEURONTIN [Concomitant]
     Dates: start: 20030515
  17. RESTORIL [Concomitant]
     Indication: INSOMNIA
     Dosage: TAKEN AT BEDTIME OR AS NEEDED.
     Route: 048
     Dates: end: 20020605
  18. CALCIUM WITH VITAMIN D [Concomitant]
     Indication: VITAMIN SUPPLEMENTATION
     Route: 048
     Dates: start: 20010627, end: 20020409
  19. VITAMIN A,C, + E [Concomitant]
     Indication: VITAMIN SUPPLEMENTATION
     Dosage: VISION FORMULA (VIT A, C, E, ZINC). RE-STARTED AT ABOVE REGIMEN ON 07 JUL 2001.
     Route: 048
     Dates: start: 20010630
  20. ZINC SULFATE [Concomitant]
     Indication: VITAMIN SUPPLEMENTATION
     Dosage: VISION FORMULA (VIT A, C, E, ZINC). RE-STARTED AT ABOVE REGIMEN ON 07 JUL 2001.
     Route: 048
     Dates: start: 20010630
  21. AMBIEN [Concomitant]
     Dates: start: 20030818

REACTIONS (4)
  - ABDOMINAL PAIN LOWER [None]
  - HAEMATOMA [None]
  - HEPATIC FIBROSIS [None]
  - POST PROCEDURAL HAEMORRHAGE [None]
